FAERS Safety Report 9918738 (Version 1)
Quarter: 2014Q1

REPORT INFORMATION
  Report Type: Report from Study
  Country: US (occurrence: US)
  Receive Date: 20140224
  Receipt Date: 20140224
  Transmission Date: 20141002
  Serious: Yes (Other)
  Sender: FDA-Public Use
  Company Number: US-ROCHE-1330834

PATIENT
  Age: 84 Year
  Sex: Female

DRUGS (11)
  1. LUCENTIS [Suspect]
     Indication: AGE-RELATED MACULAR DEGENERATION
     Route: 050
  2. AVASTIN [Suspect]
     Indication: AGE-RELATED MACULAR DEGENERATION
     Route: 050
     Dates: start: 20100427
  3. EYLEA [Concomitant]
  4. VANCOMYCIN [Concomitant]
     Route: 065
     Dates: start: 20121123, end: 20121123
  5. TROPICAMIDE [Concomitant]
     Route: 065
  6. PROPARACAINE [Concomitant]
     Route: 065
  7. SYNTHROID [Concomitant]
  8. DIOVAN [Concomitant]
  9. ISOSORBIDE MONONITRATE [Concomitant]
     Route: 065
  10. ASPRIN-EC [Concomitant]
  11. LIPITOR [Concomitant]

REACTIONS (12)
  - Uveitis [Unknown]
  - Myalgia [Unknown]
  - Arthralgia [Unknown]
  - Cough [Unknown]
  - Macular degeneration [Unknown]
  - Retinal haemorrhage [Unknown]
  - Retinal disorder [Unknown]
  - Retinal depigmentation [Unknown]
  - Choroidal neovascularisation [Unknown]
  - Vitreous detachment [Unknown]
  - Pupillary reflex impaired [Unknown]
  - Off label use [Unknown]
